FAERS Safety Report 16063670 (Version 2)
Quarter: 2019Q2

REPORT INFORMATION
  Report Type: Spontaneous
  Country: US (occurrence: US)
  Receive Date: 20190312
  Receipt Date: 20190521
  Transmission Date: 20190711
  Serious: Yes (Other)
  Sender: FDA-Public Use
  Company Number: US-PFIZER INC-2019101690

PATIENT
  Age: 59 Year
  Sex: Female

DRUGS (2)
  1. ESTRING [Suspect]
     Active Substance: ESTRADIOL
     Indication: VULVOVAGINAL DRYNESS
     Dosage: UNK, EVERY 3 MONTHS (1 RING Q 3 MONTHS)
     Dates: start: 20181215, end: 20190315
  2. ESTRING [Suspect]
     Active Substance: ESTRADIOL
     Dosage: UNK
     Dates: start: 20190415

REACTIONS (1)
  - Proctitis ulcerative [Recovered/Resolved]

NARRATIVE: CASE EVENT DATE: 20190109
